FAERS Safety Report 24269540 (Version 1)
Quarter: 2024Q3

REPORT INFORMATION
  Report Type: Spontaneous
  Country: DE (occurrence: DE)
  Receive Date: 20240830
  Receipt Date: 20240830
  Transmission Date: 20241017
  Serious: Yes (Other)
  Sender: SANDOZ
  Company Number: DE-HALEON-2192994

PATIENT

DRUGS (15)
  1. ACYCLOVIR [Suspect]
     Active Substance: ACYCLOVIR
     Indication: Product used for unknown indication
     Dosage: AT EACH CYCLE
     Route: 065
  2. CYTARABINE [Suspect]
     Active Substance: CYTARABINE
     Dosage: 10 MG, EVERY 2 WEEKS (CYCLE 5, DAY 5)
     Route: 065
  3. CYTARABINE [Suspect]
     Active Substance: CYTARABINE
     Indication: Central nervous system lymphoma
     Dosage: 10 MG, EVERY 3 WEEKS (CYCLE 4 + 6, DAY 6)
     Route: 065
  4. CYTARABINE [Suspect]
     Active Substance: CYTARABINE
     Dosage: 3000 MG/M2, EVERY 3 WEEKS (CYCLE 4 + 6, DAY 1-2)
     Route: 042
  5. GRANULOCYTE COLONY-STIMULATING FACTOR NOS [Suspect]
     Active Substance: GRANULOCYTE COLONY-STIMULATING FACTOR NOS
     Indication: Prophylaxis
     Dosage: AT EACH CYCLE
     Route: 065
  6. IFOSFAMIDE [Suspect]
     Active Substance: IFOSFAMIDE
     Indication: Central nervous system lymphoma
     Dosage: 800 MG/M2, EVERY 2 WEEKS (CYCLE 1-3, DAY 2-4)
     Route: 042
  7. IFOSFAMIDE [Suspect]
     Active Substance: IFOSFAMIDE
     Dosage: 800 MG/M2, EVERY 2 WEEKS (CYCLE 5, DAY 2-4)
     Route: 042
  8. METHOTREXATE [Suspect]
     Active Substance: METHOTREXATE
     Dosage: 2.5 MILLIGRAM, EVERY 2 WEEKS (CYCLE 5, DAY 2-4 (WITH PREDNISOLONE)
     Route: 065
  9. METHOTREXATE [Suspect]
     Active Substance: METHOTREXATE
     Dosage: 2.5 MILLIGRAM, EVERY 3 WEEKS (CYCLE 4 + 6, DAY 3-5) (WITH PREDNISOLONE)
     Route: 065
  10. METHOTREXATE [Suspect]
     Active Substance: METHOTREXATE
     Dosage: 4000 MG/M2, EVERY 2 WEEKS (CYCLE 1-3, DAY 1)
     Route: 042
  11. METHOTREXATE [Suspect]
     Active Substance: METHOTREXATE
     Indication: Central nervous system lymphoma
     Dosage: 4000 MG/M2, EVERY 2 WEEKS (CYCLE 5, DAY 1)
     Route: 042
  12. PREDNISOLONE [Suspect]
     Active Substance: PREDNISOLONE
     Dosage: 3 MG ICV, EVERY 2 WEEKS (CYCLE 5, DAY 2-4) WITH METHOTREXATE
     Route: 065
  13. PREDNISOLONE [Suspect]
     Active Substance: PREDNISOLONE
     Indication: Central nervous system lymphoma
     Dosage: 3 MG ICV, EVERY 3 WEEKS (CYCLE 4 + 6, DAY 3-5) WITH METHOTREXATE
     Route: 065
  14. RITUXIMAB [Suspect]
     Active Substance: RITUXIMAB
     Indication: Central nervous system lymphoma
     Dosage: 375 MG/M2 EVERY 2 WEEKS (CYCLE 1-3, DAY 0)
     Route: 042
  15. SULFAMETHOXAZOLE\TRIMETHOPRIM [Suspect]
     Active Substance: SULFAMETHOXAZOLE\TRIMETHOPRIM
     Indication: Product used for unknown indication
     Dosage: AT EACH CYCLE
     Route: 065

REACTIONS (1)
  - Thrombocytopenia [Unknown]
